FAERS Safety Report 6997223-4 (Version None)
Quarter: 2010Q3

REPORT INFORMATION
  Report Type: 
  Country: None (occurrence: None)
  Receive Date: 20100918
  Receipt Date: 20090928
  Transmission Date: 20110219
  Serious: Yes (Other)
  Sender: FDA-Public Use
  Company Number: US-WYE-H11241509

PATIENT
  Age: 52 Year
  Sex: Female

DRUGS (1)
  1. EFFEXOR [Suspect]
     Indication: DEPRESSION
     Route: 048
     Dates: start: 20070101, end: 20070101

REACTIONS (5)
  - AGITATION [None]
  - DRUG WITHDRAWAL SYNDROME [None]
  - MORBID THOUGHTS [None]
  - PARAESTHESIA [None]
  - SUICIDAL IDEATION [None]
